FAERS Safety Report 19922240 (Version 1)
Quarter: 2021Q4

REPORT INFORMATION
  Report Type: Spontaneous
  Country: US (occurrence: US)
  Receive Date: 20211006
  Receipt Date: 20211006
  Transmission Date: 20220303
  Serious: No
  Sender: FDA-Public Use
  Company Number: 2021A744899

PATIENT
  Sex: Female

DRUGS (1)
  1. PULMICORT FLEXHALER [Suspect]
     Active Substance: BUDESONIDE
     Indication: Asthma
     Dosage: 90.0UG/INHAL UNKNOWN
     Route: 055

REACTIONS (5)
  - COVID-19 [Recovering/Resolving]
  - Cough [Recovered/Resolved]
  - Device use issue [Not Recovered/Not Resolved]
  - Device difficult to use [Unknown]
  - Device malfunction [Unknown]

NARRATIVE: CASE EVENT DATE: 20210101
